FAERS Safety Report 5046153-6 (Version None)
Quarter: 2006Q3

REPORT INFORMATION
  Report Type: 
  Country: None (occurrence: None)
  Receive Date: 20060707
  Receipt Date: 20060707
  Transmission Date: 20061208
  Serious: Yes (Other)
  Sender: FDA-Public Use
  Company Number: None

PATIENT
  Age: 40 Year
  Sex: Male
  Weight: 70.3075 kg

DRUGS (1)
  1. LEVAQUIN [Suspect]
     Dosage: 500MG    1 PER DAY    PO
     Route: 048
     Dates: start: 20060627, end: 20060704

REACTIONS (4)
  - ARTHRALGIA [None]
  - HEART RATE INCREASED [None]
  - INSOMNIA [None]
  - JOINT SWELLING [None]
